FAERS Safety Report 23559306 (Version 1)
Quarter: 2024Q1

REPORT INFORMATION
  Report Type: Spontaneous
  Country: US (occurrence: None)
  Receive Date: 20240222
  Receipt Date: 20240222
  Transmission Date: 20240410
  Serious: Yes (Death)
  Sender: FDA-Public Use
  Company Number: None

PATIENT
  Age: 83 Year
  Sex: Male
  Weight: 90 kg

DRUGS (5)
  1. JELMYTO [Suspect]
     Active Substance: MITOMYCIN
     Indication: Ureteric cancer
     Dates: start: 20230309, end: 20230504
  2. BYSTOLIC [Concomitant]
     Active Substance: NEBIVOLOL HYDROCHLORIDE
  3. OLMESARTAN [Concomitant]
     Active Substance: OLMESARTAN
  4. CRESTOR [Concomitant]
     Active Substance: ROSUVASTATIN CALCIUM
  5. ELIQUIS [Concomitant]
     Active Substance: APIXABAN

REACTIONS (10)
  - Petechiae [None]
  - Syncope [None]
  - Arrhythmia [None]
  - Platelet count decreased [None]
  - Fatigue [None]
  - Pain [None]
  - Pyrexia [None]
  - Full blood count abnormal [None]
  - Blood creatinine increased [None]
  - Oxygen saturation decreased [None]

NARRATIVE: CASE EVENT DATE: 20230704
